FAERS Safety Report 21385727 (Version 2)
Quarter: 2022Q4

REPORT INFORMATION
  Report Type: Spontaneous
  Country: US (occurrence: US)
  Receive Date: 20220928
  Receipt Date: 20221001
  Transmission Date: 20230112
  Serious: Yes (Life-Threatening, Hospitalization, Other)
  Sender: FDA-Public Use
  Company Number: US-drreddys-SPO/USA/22/0154942

PATIENT
  Age: 33 Year
  Sex: Male

DRUGS (1)
  1. FENTANYL CITRATE [Suspect]
     Active Substance: FENTANYL CITRATE
     Indication: Product used for unknown indication

REACTIONS (7)
  - Hydrocephalus [Recovered/Resolved]
  - Unresponsive to stimuli [Recovered/Resolved]
  - Brain oedema [Recovered/Resolved]
  - Overdose [Recovered/Resolved]
  - Prescription drug used without a prescription [Recovered/Resolved]
  - Substance use [Recovered/Resolved]
  - Drug abuse [Recovered/Resolved]
